FAERS Safety Report 17870544 (Version 2)
Quarter: 2020Q4

REPORT INFORMATION
  Report Type: Spontaneous
  Country: US (occurrence: US)
  Receive Date: 20200608
  Receipt Date: 20201214
  Transmission Date: 20210113
  Serious: Yes (Hospitalization, Other)
  Sender: FDA-Public Use
  Company Number: US-PFIZER INC-2020222386

PATIENT
  Age: 39 Year
  Sex: Female
  Weight: 179.96 kg

DRUGS (23)
  1. IBRANCE [Suspect]
     Active Substance: PALBOCICLIB
     Indication: BREAST CANCER METASTATIC
     Dosage: 125 MG, ONCE DAILY FOR 21 DAYS ON
     Route: 048
     Dates: start: 20200504
  2. PREVACID [Concomitant]
     Active Substance: LANSOPRAZOLE
     Dosage: UNK(15 MG)
  3. PRENATAL [ASCORBIC ACID;CALCIUM PHOSPHATE;CYANOCOBALAMIN;ERGOCALCIFERO [Concomitant]
     Dosage: UNK (400-35-25 TAB CHEW)
  4. MECLIZINE HCL [Concomitant]
     Active Substance: MECLIZINE HYDROCHLORIDE
     Dosage: UNK(25 MG)
  5. SPIRONOLACTONE A L [Concomitant]
     Active Substance: SPIRONOLACTONE
     Dosage: UNK(100 MG)
  6. JARDIANCE [Concomitant]
     Active Substance: EMPAGLIFLOZIN
     Dosage: UNK(10 MG)
  7. XIFAXAN [Concomitant]
     Active Substance: RIFAXIMIN
     Dosage: UNK(550 MG)
  8. METFORMIN HCL [Concomitant]
     Active Substance: METFORMIN HYDROCHLORIDE
     Dosage: UNK(500 MG)
  9. BUSPIRONE HCL [Concomitant]
     Active Substance: BUSPIRONE HYDROCHLORIDE
     Dosage: UNK(10 MG)
  10. DIPHENHYDRAMINE HCL [Concomitant]
     Active Substance: DIPHENHYDRAMINE HYDROCHLORIDE
     Dosage: UNK(25 MG)
  11. ZOMETA [Concomitant]
     Active Substance: ZOLEDRONIC ACID
     Dosage: UNK (STRENGTH: 4 MG/100ML)
  12. FUROSEMIDE. [Concomitant]
     Active Substance: FUROSEMIDE
     Dosage: UNK(40 MG)
  13. KLOR-CON M20 [Concomitant]
     Active Substance: POTASSIUM CHLORIDE
     Dosage: UNK(20 MEQ)
  14. ZOMETA [Concomitant]
     Active Substance: ZOLEDRONIC ACID
     Dosage: UNK (STRENGTH: 4 MG/10ML)
  15. PROPRANOLOL HCL [Concomitant]
     Active Substance: PROPRANOLOL HYDROCHLORIDE
     Dosage: UNK(10 MG)
  16. CITALOPRAM [Concomitant]
     Active Substance: CITALOPRAM HYDROBROMIDE
     Dosage: UNK(10 MG)
  17. ONDANSETRON HCL [Concomitant]
     Active Substance: ONDANSETRON HYDROCHLORIDE
     Dosage: UNK(8 MG)
  18. TRIAMCINOLONE ACETONIDE. [Concomitant]
     Active Substance: TRIAMCINOLONE ACETONIDE
     Dosage: UNK(0.1%)
  19. TRAZODONE HYDROCHLORIDE. [Concomitant]
     Active Substance: TRAZODONE HYDROCHLORIDE
     Dosage: UNK(100 MG)
  20. FASLODEX [Concomitant]
     Active Substance: FULVESTRANT
     Dosage: UNK (STRENGTH: 250 MG/5ML)
  21. PRENATAL [ASCORBIC ACID;CALCIUM PHOSPHATE;CYANOCOBALAMIN;ERGOCALCIFERO [Concomitant]
     Dosage: UNK (400-35 TAB CHEW)
  22. GABAPENTIN. [Concomitant]
     Active Substance: GABAPENTIN
     Dosage: UNK
  23. FASLODEX [Concomitant]
     Active Substance: FULVESTRANT
     Dosage: UNK (STRENGTH: 250 MG)

REACTIONS (5)
  - Oedema [Unknown]
  - Stomatitis [Not Recovered/Not Resolved]
  - Platelet count decreased [Unknown]
  - Diarrhoea [Unknown]
  - Hepatic failure [Unknown]

NARRATIVE: CASE EVENT DATE: 2020
